FAERS Safety Report 25625142 (Version 2)
Quarter: 2025Q3

REPORT INFORMATION
  Report Type: Spontaneous
  Country: US (occurrence: US)
  Receive Date: 20250731
  Receipt Date: 20250731
  Transmission Date: 20251020
  Serious: Yes (Death)
  Sender: MERCK SHARP & DOHME LLC
  Company Number: US-009507513-2313720

PATIENT
  Sex: Female

DRUGS (2)
  1. VERQUVO [Suspect]
     Active Substance: VERICIGUAT
     Route: 048
     Dates: start: 20250625
  2. FUROSCIX [Concomitant]
     Active Substance: FUROSEMIDE
     Dates: start: 20250625

REACTIONS (3)
  - Cardiac failure [Fatal]
  - Ejection fraction decreased [Fatal]
  - Jaundice [Fatal]

NARRATIVE: CASE EVENT DATE: 20250101
